FAERS Safety Report 21480391 (Version 1)
Quarter: 2022Q4

REPORT INFORMATION
  Report Type: Spontaneous
  Country: US (occurrence: US)
  Receive Date: 20221019
  Receipt Date: 20221019
  Transmission Date: 20230113
  Serious: No
  Sender: FDA-Public Use
  Company Number: US-BAYER-2022A141972

PATIENT

DRUGS (1)
  1. KERENDIA [Suspect]
     Active Substance: FINERENONE
     Indication: Type 1 diabetes mellitus
     Dosage: UNK
     Dates: start: 202110

REACTIONS (2)
  - Blood creatinine increased [None]
  - Off label use [None]
